FAERS Safety Report 14366717 (Version 2)
Quarter: 2018Q2

REPORT INFORMATION
  Report Type: Report from Study
  Country: VN (occurrence: VN)
  Receive Date: 20180109
  Receipt Date: 20180409
  Transmission Date: 20180711
  Serious: Yes (Death)
  Sender: FDA-Public Use
  Company Number: VN-ASTELLAS-2018US000614

PATIENT
  Age: 71 Year
  Sex: Female

DRUGS (1)
  1. ERLOTINIB [Suspect]
     Active Substance: ERLOTINIB
     Indication: LUNG NEOPLASM MALIGNANT
     Dosage: 150 MG, ONCE DAILY (26/MAY/2017, 26/JUN/2017, 16/AUG/2017, 15/SEP/2017, 03/OCT/2017 AND 27/OCT/2017)
     Route: 048
     Dates: start: 20170428, end: 201803

REACTIONS (3)
  - Death [Fatal]
  - Duodenitis [Unknown]
  - Gastritis [Unknown]

NARRATIVE: CASE EVENT DATE: 20170526
